FAERS Safety Report 5289222-8 (Version None)
Quarter: 2007Q1

REPORT INFORMATION
  Report Type: 
  Country: None (occurrence: None)
  Receive Date: 20070124
  Receipt Date: 20060523
  Transmission Date: 20070707
  Serious: Yes (Other)
  Sender: FDA-Public Use
  Company Number: HQWYE526924MAY06

PATIENT
  Sex: Female

DRUGS (1)
  1. CORDARONE [Suspect]

REACTIONS (2)
  - NONSPECIFIC REACTION [None]
  - PULMONARY TOXICITY [None]
